FAERS Safety Report 21879740 (Version 1)
Quarter: 2023Q1

REPORT INFORMATION
  Report Type: Spontaneous
  Country: US (occurrence: US)
  Receive Date: 20230118
  Receipt Date: 20230118
  Transmission Date: 20230418
  Serious: No
  Sender: FDA-Public Use
  Company Number: US-PERRIGO-22US014870

PATIENT
  Age: 1 Year
  Sex: Male
  Weight: 11.791 kg

DRUGS (3)
  1. IBUPROFEN [Suspect]
     Active Substance: IBUPROFEN
     Indication: Pyrexia
     Dosage: 100 MG, Q 6-8 HOURS PRN
     Route: 048
     Dates: start: 202209, end: 202209
  2. IBUPROFEN [Suspect]
     Active Substance: IBUPROFEN
     Dosage: 100 MG, Q 6-8 HOURS PRN
     Route: 048
     Dates: start: 20221106, end: 20221107
  3. IBUPROFEN [Suspect]
     Active Substance: IBUPROFEN
     Dosage: 100 MG, TWICE
     Route: 048
     Dates: start: 20221108, end: 20221108

REACTIONS (2)
  - Product administered to patient of inappropriate age [Recovered/Resolved]
  - Wrong product administered [Recovered/Resolved]

NARRATIVE: CASE EVENT DATE: 20220901
